FAERS Safety Report 7974658-4 (Version None)
Quarter: 2011Q4

REPORT INFORMATION
  Report Type: 
  Country: None (occurrence: None)
  Receive Date: 20111213
  Receipt Date: 20111205
  Transmission Date: 20120403
  Serious: Yes (Other)
  Sender: FDA-Public Use
  Company Number: US-AMGEN-USASP2011064483

PATIENT
  Age: 67 Year
  Sex: Female

DRUGS (1)
  1. ENBREL [Suspect]
     Indication: PSORIASIS
     Dosage: 50 MG, QWK
     Dates: start: 20050215

REACTIONS (10)
  - NASAL CONGESTION [None]
  - PSORIASIS [None]
  - GAIT DISTURBANCE [None]
  - INCORRECT STORAGE OF DRUG [None]
  - EPISTAXIS [None]
  - SINUS DISORDER [None]
  - LOCAL SWELLING [None]
  - SINUS CONGESTION [None]
  - PARANASAL SINUS HYPERSECRETION [None]
  - PAIN IN EXTREMITY [None]
